FAERS Safety Report 25937463 (Version 1)
Quarter: 2025Q4

REPORT INFORMATION
  Report Type: Report from Study
  Country: US (occurrence: US)
  Receive Date: 20251018
  Receipt Date: 20251018
  Transmission Date: 20260117
  Serious: Yes (Other)
  Sender: ALEXION PHARMACEUTICALS
  Company Number: US-AstraZeneca-CH-00971372A

PATIENT
  Sex: Female

DRUGS (1)
  1. ACALABRUTINIB [Suspect]
     Active Substance: ACALABRUTINIB
     Indication: Chronic lymphocytic leukaemia
     Dosage: 100 MILLIGRAM, BID
     Dates: start: 20250929

REACTIONS (6)
  - Parkinson^s disease [Unknown]
  - Osteoporosis [Unknown]
  - Fatigue [Unknown]
  - Back pain [Unknown]
  - Fracture [Unknown]
  - Sleep disorder [Unknown]
